FAERS Safety Report 22902350 (Version 4)
Quarter: 2023Q4

REPORT INFORMATION
  Report Type: Spontaneous
  Country: US (occurrence: US)
  Receive Date: 20230904
  Receipt Date: 20231004
  Transmission Date: 20240110
  Serious: Yes (Other)
  Sender: FDA-Public Use
  Company Number: US-TRIS PHARMA, INC.-23US011042

PATIENT

DRUGS (3)
  1. ACETAMINOPHEN\HYDROCODONE BITARTRATE [Suspect]
     Active Substance: ACETAMINOPHEN\HYDROCODONE BITARTRATE
     Indication: Back pain
     Dosage: UNK
     Dates: start: 2010
  2. ACETAMINOPHEN\HYDROCODONE BITARTRATE [Suspect]
     Active Substance: ACETAMINOPHEN\HYDROCODONE BITARTRATE
     Indication: Pain in extremity
     Dosage: UNK
     Route: 048
     Dates: start: 2018
  3. ACETAMINOPHEN\HYDROCODONE BITARTRATE [Suspect]
     Active Substance: ACETAMINOPHEN\HYDROCODONE BITARTRATE
     Indication: Pain in extremity
     Dosage: 1 TABLET, Q 8 HR
     Route: 048

REACTIONS (9)
  - Diabetes mellitus [Unknown]
  - Vision blurred [Unknown]
  - Pain [Unknown]
  - Dry mouth [Unknown]
  - Gingival bleeding [Unknown]
  - Suspected counterfeit product [Unknown]
  - Product use complaint [Unknown]
  - Liver disorder [Unknown]
  - Drug ineffective [Unknown]
